FAERS Safety Report 17444775 (Version 1)
Quarter: 2020Q1

REPORT INFORMATION
  Report Type: Spontaneous
  Country: GB (occurrence: GB)
  Receive Date: 20200221
  Receipt Date: 20200221
  Transmission Date: 20200409
  Serious: Yes (Hospitalization)
  Sender: FDA-Public Use
  Company Number: GB-TEVA-2020-GB-1189622

PATIENT
  Age: 80 Year
  Sex: Male

DRUGS (22)
  1. LAXIDO [Concomitant]
     Active Substance: POLYETHYLENE GLYCOL 3350\POTASSIUM CHLORIDE\SODIUM BICARBONATE\SODIUM CHLORIDE
     Dosage: DISSOLVE CONTENTS OF ONE SACHET IN HALF A GLASS (125ML) OF WATER
  2. LAMOTRIGINE. [Concomitant]
     Active Substance: LAMOTRIGINE
     Dosage: FOR TWO WEEKS, THEN TWO 50MG TO BE TAKEN FOR TWO WEEKS
  3. FOLIC ACID. [Concomitant]
     Active Substance: FOLIC ACID
  4. SERTRALINE [Concomitant]
     Active Substance: SERTRALINE HYDROCHLORIDE
     Dosage: MORNING
  5. LINAGLIPTIN [Concomitant]
     Active Substance: LINAGLIPTIN
  6. CASSIA [Concomitant]
     Indication: CONSTIPATION
     Dosage: TWO TO BE TAKEN AT NIGHT
  7. TAMSULOSIN [Concomitant]
     Active Substance: TAMSULOSIN
  8. VITAMIN B COMPOUND STRONG [Concomitant]
     Active Substance: NIACINAMIDE\PYRIDOXINE HYDROCHLORIDE\RIBOFLAVIN\THIAMINE HYDROCHLORIDE
  9. BISACODYL. [Concomitant]
     Active Substance: BISACODYL
     Dosage: AT NIGHT
  10. THIAMINE. [Concomitant]
     Active Substance: THIAMINE
  11. SUDOCREM [Concomitant]
     Active Substance: LANOLIN\ZINC OXIDE
     Dosage: AS DIRECTED
  12. HYDROCORTISONE. [Concomitant]
     Active Substance: HYDROCORTISONE
     Dosage: APPLY THINLY AS DIRECTED
  13. MIRTAZAPINE. [Concomitant]
     Active Substance: MIRTAZAPINE
  14. FUSIDIC ACID [Concomitant]
     Active Substance: FUSIDIC ACID
  15. GABAPENTIN. [Suspect]
     Active Substance: GABAPENTIN
     Dosage: 300 MILLIGRAM
     Route: 065
  16. FUCIDIN H [Concomitant]
     Dosage: APPLY THINLY ONCE OR TWICE A DAY
  17. MACROGOL [Concomitant]
     Active Substance: POLYETHYLENE GLYCOLS
  18. ZOPICLONE [Concomitant]
     Active Substance: ZOPICLONE
     Dosage: AT NIGHT
  19. CLOPIDOGREL [Concomitant]
     Active Substance: CLOPIDOGREL BISULFATE
  20. GLYCERYL TRINITRATE [Concomitant]
     Active Substance: NITROGLYCERIN
     Indication: CHEST PAIN
     Dosage: ONE OR TWO DOSES UNDER TONGUE AND THEN CLOSE MOUTH AS DIRECTED
     Route: 060
  21. HYDROCORTISONE. [Concomitant]
     Active Substance: HYDROCORTISONE
  22. MICONAZOLE. [Concomitant]
     Active Substance: MICONAZOLE
     Dosage: APPLY THINLY AS DIRECTED

REACTIONS (1)
  - Dementia [Unknown]
